FAERS Safety Report 8275042-9 (Version None)
Quarter: 2012Q2

REPORT INFORMATION
  Report Type: 
  Country: None (occurrence: None)
  Receive Date: 20120411
  Receipt Date: 20120327
  Transmission Date: 20120825
  Serious: Yes (Hospitalization)
  Sender: FDA-Public Use
  Company Number: ES-PFIZER INC-2012077905

PATIENT
  Age: 77 Year
  Sex: Male

DRUGS (1)
  1. ALDACTONE [Suspect]
     Dosage: UNK
     Route: 048
     Dates: start: 20090101, end: 20100809

REACTIONS (2)
  - HYPERKALAEMIA [None]
  - HYPERNATRAEMIA [None]
